FAERS Safety Report 11507788 (Version 1)
Quarter: 2015Q3

REPORT INFORMATION
  Report Type: Spontaneous
  Country: US (occurrence: None)
  Receive Date: 20150914
  Receipt Date: 20150914
  Transmission Date: 20151125
  Serious: Yes (Other)
  Sender: FDA-Public Use
  Company Number: None

PATIENT
  Age: 51 Year
  Sex: Male
  Weight: 90.72 kg

DRUGS (5)
  1. VALACYCLOVIR [Concomitant]
     Active Substance: VALACYCLOVIR HYDROCHLORIDE
  2. LISINOPRIL. [Concomitant]
     Active Substance: LISINOPRIL
  3. MULTI VITAMIN [Concomitant]
     Active Substance: VITAMINS
  4. AZITHROMYCIN [Suspect]
     Active Substance: AZITHROMYCIN ANHYDROUS
     Indication: PHARYNGITIS
     Dosage: 3 PILLS FIRST DAY, THREE TIMES DAILY TAKEN BY MOUTH
     Route: 048
     Dates: start: 20130611, end: 20130612
  5. FENOFIRBRATE [Concomitant]

REACTIONS (3)
  - Anosmia [None]
  - Laryngitis [None]
  - Ageusia [None]

NARRATIVE: CASE EVENT DATE: 20130611
